FAERS Safety Report 9604386 (Version 1)
Quarter: 2013Q4

REPORT INFORMATION
  Report Type: Spontaneous
  Country: US (occurrence: US)
  Receive Date: 20131008
  Receipt Date: 20131008
  Transmission Date: 20140711
  Serious: No
  Sender: FDA-Public Use
  Company Number: US-GLAXOSMITHKLINE-A1035035A

PATIENT
  Sex: Male

DRUGS (2)
  1. POTIGA [Suspect]
     Indication: CONVULSION
     Dosage: 600MG PER DAY
     Route: 048
     Dates: start: 201305
  2. SEIZURE MEDICATION [Concomitant]

REACTIONS (2)
  - Chromaturia [Not Recovered/Not Resolved]
  - Blood bilirubin increased [Unknown]
